FAERS Safety Report 8381099-7 (Version None)
Quarter: 2012Q2

REPORT INFORMATION
  Report Type: 
  Country: None (occurrence: None)
  Receive Date: 20120523
  Receipt Date: 20120522
  Transmission Date: 20120825
  Serious: No
  Sender: FDA-Public Use
  Company Number: US-PFIZER INC-2012109232

PATIENT
  Sex: Male

DRUGS (6)
  1. AVODART [Concomitant]
     Dosage: UNK
  2. TAMSULOSIN [Concomitant]
     Dosage: UNK
  3. FINASTERIDE [Concomitant]
     Dosage: UNK
  4. TOVIAZ [Suspect]
     Indication: URINARY INCONTINENCE
     Dosage: 4 MG, 1X/DAY
     Route: 048
     Dates: start: 20120423
  5. OMEPRAZOLE [Concomitant]
     Dosage: UNK
  6. DIOVAN [Concomitant]
     Dosage: UNK

REACTIONS (1)
  - DIZZINESS [None]
